FAERS Safety Report 6505415-3 (Version None)
Quarter: 2009Q4

REPORT INFORMATION
  Report Type: 
  Country: None (occurrence: None)
  Receive Date: 20091218
  Receipt Date: 20091211
  Transmission Date: 20100525
  Serious: Yes (Other)
  Sender: FDA-Public Use
  Company Number: GB-KINGPHARMUSA00001-K200901550

PATIENT
  Age: 47 Year
  Sex: Female

DRUGS (2)
  1. EPIPEN [Suspect]
     Indication: PROPHYLAXIS
     Dosage: 0.3 MG, PRN
     Route: 030
  2. DOVOBET [Suspect]
     Dosage: UNK
     Route: 061
     Dates: start: 20091218, end: 20081218

REACTIONS (1)
  - PHARYNGEAL OEDEMA [None]
